FAERS Safety Report 8402726-1 (Version None)
Quarter: 2012Q2

REPORT INFORMATION
  Report Type: 
  Country: None (occurrence: None)
  Receive Date: 20120601
  Receipt Date: 20120522
  Transmission Date: 20120825
  Serious: Yes (Hospitalization, Other)
  Sender: FDA-Public Use
  Company Number: FI-NOVOPROD-352340

PATIENT
  Age: 69 Year
  Sex: Male
  Weight: 115 kg

DRUGS (9)
  1. DIFORMIN [Concomitant]
     Dosage: 1 G, BID
     Route: 048
  2. EZETIMIBE [Concomitant]
     Dosage: 10MGX1
  3. VICTOZA [Suspect]
     Dosage: 1.2 MG, QD
     Route: 058
     Dates: end: 20110705
  4. METOPROLOL TARTRATE [Concomitant]
     Dosage: 1X1
     Dates: end: 20110501
  5. VICTOZA [Suspect]
     Indication: TYPE 2 DIABETES MELLITUS
     Dosage: 0.6 MG, QD
     Route: 058
     Dates: start: 20110407
  6. LOSARTAN POTASSIUM AND HYDROCHLOROTHIAZIDE [Concomitant]
     Dosage: 120MG/25MGX1
  7. LERCANIDIPINE [Concomitant]
     Dosage: 10MGX1
  8. NOVOLOG [Concomitant]
     Indication: TYPE 2 DIABETES MELLITUS
     Dosage: 60 IU, BID
     Route: 058
  9. BISOPROLOL FUMARATE [Concomitant]
     Dosage: 1X7.5MG
     Route: 065
     Dates: start: 20110501

REACTIONS (2)
  - TACHYCARDIA [None]
  - ATRIAL FIBRILLATION [None]
